FAERS Safety Report 16731755 (Version 1)
Quarter: 2019Q3

REPORT INFORMATION
  Report Type: Spontaneous
  Country: AU (occurrence: AU)
  Receive Date: 20190822
  Receipt Date: 20190822
  Transmission Date: 20191005
  Serious: Yes (Other)
  Sender: FDA-Public Use
  Company Number: PHHY2019AU195033

PATIENT
  Age: 30 Year
  Sex: Female

DRUGS (1)
  1. GILENYA [Suspect]
     Active Substance: FINGOLIMOD HYDROCHLORIDE
     Indication: PRODUCT USED FOR UNKNOWN INDICATION
     Route: 065

REACTIONS (11)
  - Neurogenic bladder [Unknown]
  - Vertigo [Unknown]
  - Lymphocyte count decreased [Unknown]
  - Alanine aminotransferase increased [Unknown]
  - Depression [Unknown]
  - Fall [Unknown]
  - Dry mouth [Unknown]
  - Fatigue [Unknown]
  - White blood cell count decreased [Unknown]
  - Lymphocyte count increased [Unknown]
  - Skin abrasion [Unknown]
